FAERS Safety Report 5259993-5 (Version None)
Quarter: 2007Q1

REPORT INFORMATION
  Report Type: 
  Country: None (occurrence: None)
  Receive Date: 20070309
  Receipt Date: 20060124
  Transmission Date: 20070707
  Serious: Yes (Other)
  Sender: FDA-Public Use
  Company Number: US-GLAXOSMITHKLINE-A0590431A

PATIENT
  Age: 56 Year
  Sex: Female

DRUGS (1)
  1. NICORETTE [Suspect]
     Dosage: 2MG SEE DOSAGE TEXT

REACTIONS (3)
  - DRUG ABUSER [None]
  - DRUG WITHDRAWAL SYNDROME [None]
  - NICOTINE DEPENDENCE [None]
